FAERS Safety Report 8251154-0 (Version None)
Quarter: 2012Q2

REPORT INFORMATION
  Report Type: 
  Country: None (occurrence: None)
  Receive Date: 20120402
  Receipt Date: 20120322
  Transmission Date: 20120825
  Serious: Yes (Hospitalization)
  Sender: FDA-Public Use
  Company Number: FR-MERCK-1203FRA00097

PATIENT
  Age: 13 Year
  Sex: Male

DRUGS (1)
  1. JANUMET [Suspect]
     Indication: ACCIDENTAL DRUG INTAKE BY CHILD
     Route: 065
     Dates: start: 20110628, end: 20110628

REACTIONS (2)
  - NO ADVERSE EVENT [None]
  - ACCIDENTAL DRUG INTAKE BY CHILD [None]
